FAERS Safety Report 19428341 (Version 1)
Quarter: 2021Q2

REPORT INFORMATION
  Report Type: Spontaneous
  Country: US (occurrence: US)
  Receive Date: 20210617
  Receipt Date: 20210617
  Transmission Date: 20210717
  Serious: Yes (Other)
  Sender: FDA-Public Use
  Company Number: US-TEVA-2021-US-1921481

PATIENT
  Age: 64 Year
  Sex: Male

DRUGS (1)
  1. TESTOSTERONE TEVA [Suspect]
     Active Substance: TESTOSTERONE
     Dosage: FOR AT LEAST 20 YEARS
     Route: 061

REACTIONS (7)
  - Feeling abnormal [Recovered/Resolved]
  - Loss of personal independence in daily activities [Recovered/Resolved]
  - Impaired work ability [Recovered/Resolved]
  - Cerebrovascular accident [Unknown]
  - Blood testosterone increased [Recovered/Resolved]
  - Off label use [Unknown]
  - Expired product administered [Unknown]

NARRATIVE: CASE EVENT DATE: 2012
